FAERS Safety Report 4883065-2 (Version None)
Quarter: 2006Q1

REPORT INFORMATION
  Report Type: 
  Country: None (occurrence: None)
  Receive Date: 20060118
  Receipt Date: 20060106
  Transmission Date: 20060701
  Serious: Yes (Hospitalization)
  Sender: FDA-Public Use
  Company Number: FR-BRISTOL-MYERS SQUIBB COMPANY-13249149

PATIENT
  Age: 61 Year
  Sex: Male
  Weight: 82 kg

DRUGS (13)
  1. ENDOXAN [Suspect]
     Indication: LYMPHOMA
     Route: 042
     Dates: start: 20041103, end: 20041103
  2. BLEOMYCIN SULFATE [Suspect]
     Indication: LYMPHOMA
     Route: 042
     Dates: start: 20041107, end: 20041107
  3. ADRIBLASTINE [Suspect]
     Indication: LYMPHOMA
     Route: 042
     Dates: start: 20041103, end: 20041103
  4. ELDISINE [Suspect]
     Indication: LYMPHOMA
     Route: 042
     Dates: start: 20041106, end: 20041106
  5. MABTHERA [Suspect]
     Indication: LYMPHOMA
     Route: 042
     Dates: start: 20041108, end: 20041108
  6. METHOTREXATE [Suspect]
     Indication: LYMPHOMA
     Route: 037
     Dates: start: 20041104, end: 20041104
  7. TENORDATE [Concomitant]
     Indication: HYPERTENSION
  8. ZYLORIC [Concomitant]
     Indication: HAEMATOMA
  9. MOPRAL [Concomitant]
     Indication: HAEMATOMA
  10. ENDOTELON [Concomitant]
     Indication: HAEMATOMA
  11. SOLU-MEDROL [Concomitant]
     Dates: start: 20041103, end: 20051107
  12. NEORECORMON [Concomitant]
     Route: 058
  13. NEUPOGEN [Concomitant]
     Dates: start: 20041108, end: 20041115

REACTIONS (2)
  - AGRANULOCYTOSIS [None]
  - THROMBOCYTOPENIA [None]
